FAERS Safety Report 11186489 (Version 2)
Quarter: 2015Q3

REPORT INFORMATION
  Report Type: Report from Study
  Country: US (occurrence: US)
  Receive Date: 20150613
  Receipt Date: 20150722
  Transmission Date: 20151125
  Serious: Yes (Other)
  Sender: FDA-Public Use
  Company Number: US-BIOGENIDEC-2015BI081123

PATIENT
  Age: 49 Year
  Sex: Female
  Weight: 73 kg

DRUGS (3)
  1. OXYCODONE [Concomitant]
     Active Substance: OXYCODONE
  2. TECFIDERA [Suspect]
     Active Substance: DIMETHYL FUMARATE
     Indication: MULTIPLE SCLEROSIS
     Route: 048
     Dates: start: 20141230
  3. IBUPROFEN. [Concomitant]
     Active Substance: IBUPROFEN

REACTIONS (1)
  - Uterine cyst [Recovered/Resolved]
